FAERS Safety Report 23778152 (Version 1)
Quarter: 2024Q2

REPORT INFORMATION
  Report Type: Spontaneous
  Country: US (occurrence: US)
  Receive Date: 20240424
  Receipt Date: 20240424
  Transmission Date: 20240715
  Serious: Yes (Hospitalization)
  Sender: FDA-Public Use
  Company Number: US-UCBSA-2024019356

PATIENT
  Sex: Female

DRUGS (1)
  1. FINTEPLA [Suspect]
     Active Substance: FENFLURAMINE
     Indication: Product used for unknown indication
     Dosage: UNK

REACTIONS (7)
  - Vertigo [Unknown]
  - Dysstasia [Unknown]
  - Drooling [Unknown]
  - Hiccups [Unknown]
  - Hypophagia [Unknown]
  - Fluid intake reduced [Unknown]
  - Unresponsive to stimuli [Unknown]
